FAERS Safety Report 6299792-9 (Version None)
Quarter: 2009Q3

REPORT INFORMATION
  Report Type: 
  Country: None (occurrence: None)
  Receive Date: 20090804
  Receipt Date: 20090721
  Transmission Date: 20100115
  Serious: Yes (Hospitalization, Other)
  Sender: FDA-Public Use
  Company Number: US-000578

PATIENT
  Age: 11 Year
  Sex: Male

DRUGS (2)
  1. SOMATROPIN [Suspect]
     Indication: WEIGHT DECREASED
  2. METFORMIN [Concomitant]

REACTIONS (3)
  - HYPERTENSION [None]
  - PITUITARY TUMOUR BENIGN [None]
  - PITUITARY-DEPENDENT CUSHING'S SYNDROME [None]
